FAERS Safety Report 16307750 (Version 3)
Quarter: 2019Q4

REPORT INFORMATION
  Report Type: Spontaneous
  Country: US (occurrence: US)
  Receive Date: 20190514
  Receipt Date: 20191115
  Transmission Date: 20200122
  Serious: Yes (Hospitalization, Other)
  Sender: FDA-Public Use
  Company Number: US-ASTRAZENECA-2019SE68093

PATIENT
  Age: 847 Month
  Sex: Male

DRUGS (50)
  1. LIPITOR [Concomitant]
     Active Substance: ATORVASTATIN CALCIUM
  2. TEMAZEPAM. [Concomitant]
     Active Substance: TEMAZEPAM
  3. CIPROFLOXACIN HCL [Concomitant]
     Active Substance: CIPROFLOXACIN HYDROCHLORIDE
  4. NEXIUM [Suspect]
     Active Substance: ESOMEPRAZOLE MAGNESIUM
     Indication: GASTROOESOPHAGEAL REFLUX DISEASE
     Route: 048
     Dates: start: 20000101, end: 20161231
  5. PROTONIX [Suspect]
     Active Substance: PANTOPRAZOLE SODIUM
     Indication: GASTROOESOPHAGEAL REFLUX DISEASE
     Dosage: GENERIC
     Route: 048
  6. MEGESTROL ACETATE. [Concomitant]
     Active Substance: MEGESTROL ACETATE
  7. ROZEREM [Concomitant]
     Active Substance: RAMELTEON
  8. CEFUROXIME AXETIL. [Concomitant]
     Active Substance: CEFUROXIME AXETIL
  9. PREDNISONE. [Concomitant]
     Active Substance: PREDNISONE
  10. NEXIUM [Suspect]
     Active Substance: ESOMEPRAZOLE MAGNESIUM
     Indication: GASTROOESOPHAGEAL REFLUX DISEASE
     Route: 048
     Dates: start: 2005, end: 2017
  11. NEXIUM [Suspect]
     Active Substance: ESOMEPRAZOLE MAGNESIUM
     Indication: GASTROOESOPHAGEAL REFLUX DISEASE
     Dosage: GENERIC
     Route: 048
     Dates: start: 20081125
  12. POTASSIUM CHLORIDE. [Concomitant]
     Active Substance: POTASSIUM CHLORIDE
  13. ACETAMINOPHEN. [Concomitant]
     Active Substance: ACETAMINOPHEN
  14. METOPROLOL SUCCINATE. [Concomitant]
     Active Substance: METOPROLOL SUCCINATE
  15. HYDROMORPHONE HCL [Concomitant]
     Active Substance: HYDROMORPHONE HYDROCHLORIDE
  16. FELODIPINE. [Concomitant]
     Active Substance: FELODIPINE
  17. ALPRAZOLAM. [Concomitant]
     Active Substance: ALPRAZOLAM
  18. VITAMIN D2 [Concomitant]
     Active Substance: ERGOCALCIFEROL
  19. BENZONATATE. [Concomitant]
     Active Substance: BENZONATATE
  20. CEFDINIR. [Concomitant]
     Active Substance: CEFDINIR
  21. CEPHALEXIN. [Concomitant]
     Active Substance: CEPHALEXIN
  22. VIAGRA [Concomitant]
     Active Substance: SILDENAFIL CITRATE
  23. LEVITRA [Concomitant]
     Active Substance: VARDENAFIL HYDROCHLORIDE
  24. PRILOSEC [Suspect]
     Active Substance: OMEPRAZOLE MAGNESIUM
     Route: 048
     Dates: start: 2005, end: 2017
  25. PROTONIX [Suspect]
     Active Substance: PANTOPRAZOLE SODIUM
     Indication: GASTROOESOPHAGEAL REFLUX DISEASE
     Route: 048
     Dates: start: 2005, end: 2017
  26. AZITHROMYCIN ANHYDROUS. [Concomitant]
     Active Substance: AZITHROMYCIN ANHYDROUS
  27. CYANOCOBALAMIN. [Concomitant]
     Active Substance: CYANOCOBALAMIN
  28. CARISOPRODOL. [Concomitant]
     Active Substance: CARISOPRODOL
  29. DARVOCET-N 100 [Concomitant]
     Active Substance: ACETAMINOPHEN\PROPOXYPHENE NAPSYLATE
  30. FLOMAX [Concomitant]
     Active Substance: TAMSULOSIN HYDROCHLORIDE
  31. CLONIDINE. [Concomitant]
     Active Substance: CLONIDINE
  32. LUNESTA [Concomitant]
     Active Substance: ESZOPICLONE
  33. VERAMYST [Concomitant]
     Active Substance: FLUTICASONE FUROATE
  34. LORATADINE. [Concomitant]
     Active Substance: LORATADINE
  35. NEXIUM [Suspect]
     Active Substance: ESOMEPRAZOLE MAGNESIUM
     Indication: GASTROOESOPHAGEAL REFLUX DISEASE
     Route: 048
     Dates: start: 20050101, end: 20171231
  36. ALFUZOSIN [Concomitant]
     Active Substance: ALFUZOSIN
  37. CIALIS [Concomitant]
     Active Substance: TADALAFIL
  38. OXYCODONE HCL/ACETAMINOPHEN [Concomitant]
  39. PROTONIX [Suspect]
     Active Substance: PANTOPRAZOLE SODIUM
     Indication: GASTROOESOPHAGEAL REFLUX DISEASE
     Route: 048
     Dates: start: 20081207
  40. RAMELTEON [Concomitant]
     Active Substance: RAMELTEON
  41. GABAPENTIN. [Concomitant]
     Active Substance: GABAPENTIN
  42. SKELAXIN [Concomitant]
     Active Substance: METAXALONE
  43. CELEBREX [Concomitant]
     Active Substance: CELECOXIB
  44. OXYMETAZOLINE HCL [Concomitant]
     Active Substance: OXYMETAZOLINE HYDROCHLORIDE
  45. FLONASE [Concomitant]
     Active Substance: FLUTICASONE PROPIONATE
  46. AMOXICILLIN TRI/POTASSIUM CLAV [Concomitant]
  47. DECONSAL II [Concomitant]
  48. BENAZEPRIL HCL [Concomitant]
     Active Substance: BENAZEPRIL HYDROCHLORIDE
  49. LEVOFLOXACIN. [Concomitant]
     Active Substance: LEVOFLOXACIN
  50. GATIFLOXACIN. [Concomitant]
     Active Substance: GATIFLOXACIN

REACTIONS (8)
  - Sepsis [Not Recovered/Not Resolved]
  - Hypokalaemia [Not Recovered/Not Resolved]
  - Chronic kidney disease [Not Recovered/Not Resolved]
  - Acute kidney injury [Not Recovered/Not Resolved]
  - Nephritis [Not Recovered/Not Resolved]
  - Renal failure [Unknown]
  - Acidosis [Not Recovered/Not Resolved]
  - End stage renal disease [Unknown]

NARRATIVE: CASE EVENT DATE: 200812
